FAERS Safety Report 9284507 (Version 1)
Quarter: 2013Q2

REPORT INFORMATION
  Report Type: Spontaneous
  Country: US (occurrence: US)
  Receive Date: 20130510
  Receipt Date: 20130510
  Transmission Date: 20140414
  Serious: No
  Sender: FDA-Public Use
  Company Number: US-COVIDIEN/TYCO HEALTHCARE/MALLINCKRODT-T201301373

PATIENT
  Age: 63 Year
  Sex: Female
  Weight: 68.93 kg

DRUGS (5)
  1. FENTANYL TRANSDERMAL SYSTEM [Suspect]
     Indication: PAIN
     Dosage: 25 MCG/HR, Q 3 DAYS
     Route: 062
     Dates: start: 201302
  2. SYNTHROID [Concomitant]
     Indication: HYPOTHYROIDISM
     Dosage: UNK
  3. SOMA [Concomitant]
     Indication: MUSCLE SPASMS
     Dosage: UNK
  4. VICODIN [Concomitant]
     Indication: BREAKTHROUGH PAIN
     Dosage: UNK
  5. NEURONTIN [Concomitant]
     Indication: NEUROPATHY PERIPHERAL
     Dosage: UNK

REACTIONS (1)
  - Pain [Not Recovered/Not Resolved]
